FAERS Safety Report 23736925 (Version 1)
Quarter: 2024Q2

REPORT INFORMATION
  Report Type: Spontaneous
  Country: US (occurrence: US)
  Receive Date: 20240412
  Receipt Date: 20240412
  Transmission Date: 20240716
  Serious: Yes (Other)
  Sender: FDA-Public Use
  Company Number: US-SUN PHARMACEUTICAL INDUSTRIES LTD-2024R1-440736

PATIENT
  Age: 65 Year
  Sex: Male

DRUGS (2)
  1. CALCITRIOL [Suspect]
     Active Substance: CALCITRIOL
     Indication: Osteomalacia
     Dosage: 1 MCG, DAILY
     Route: 065
  2. VITAMIN D [Suspect]
     Active Substance: VITAMIN D NOS
     Indication: Osteomalacia
     Dosage: 5000 INTERNATIONAL UNIT, DAILY
     Route: 065

REACTIONS (2)
  - Condition aggravated [Unknown]
  - Hungry bone syndrome [Unknown]
